FAERS Safety Report 6811939-1 (Version None)
Quarter: 2010Q3

REPORT INFORMATION
  Report Type: 
  Country: None (occurrence: None)
  Receive Date: 20100701
  Receipt Date: 20100623
  Transmission Date: 20110219
  Serious: Yes (Other)
  Sender: FDA-Public Use
  Company Number: US-BAYER-200932725NA

PATIENT
  Age: 64 Year
  Sex: Male

DRUGS (10)
  1. NEXAVAR [Suspect]
     Indication: RENAL CANCER
     Dosage: AS USED: 400-200 MG  UNIT DOSE: 200 MG
     Route: 048
     Dates: start: 20090801, end: 20100501
  2. METFORMIN HCL [Concomitant]
  3. GEMIFBOLO [Concomitant]
  4. ELAVIL [Concomitant]
  5. FOSINOPRIL SODIUM [Concomitant]
  6. LOPRESSOR [Concomitant]
  7. TYLENOL [Concomitant]
  8. VITAMINS [Concomitant]
  9. LIPITOR [Concomitant]
  10. TRAMADOL [Concomitant]

REACTIONS (3)
  - ABDOMINAL PAIN [None]
  - EPISTAXIS [None]
  - LIP SWELLING [None]
